FAERS Safety Report 14653561 (Version 1)
Quarter: 2018Q1

REPORT INFORMATION
  Report Type: Spontaneous
  Country: US (occurrence: US)
  Receive Date: 20180319
  Receipt Date: 20180319
  Transmission Date: 20180509
  Serious: No
  Sender: FDA-Public Use
  Company Number: US-BAYER-2018-045799

PATIENT
  Age: 83 Year
  Sex: Male
  Weight: 99 kg

DRUGS (1)
  1. MIRALAX [Suspect]
     Active Substance: POLYETHYLENE GLYCOL 3350
     Indication: CONSTIPATION
     Dosage: UNK, -5 CAPFULS DAILY DOSE
     Route: 048

REACTIONS (11)
  - Product use in unapproved indication [Unknown]
  - Circumstance or information capable of leading to medication error [Unknown]
  - Poor quality drug administered [Unknown]
  - Therapeutic response unexpected [Unknown]
  - Poor quality drug administered [Unknown]
  - Product taste abnormal [None]
  - Product prescribing issue [Unknown]
  - Off label use [Unknown]
  - Therapeutic product ineffective for unapproved indication [Unknown]
  - Poor quality drug administered [Unknown]
  - Poor quality drug administered [Unknown]

NARRATIVE: CASE EVENT DATE: 20180302
